FAERS Safety Report 9440284 (Version 1)
Quarter: 2013Q3

REPORT INFORMATION
  Report Type: Spontaneous
  Country: PH (occurrence: PH)
  Receive Date: 20130805
  Receipt Date: 20130805
  Transmission Date: 20140515
  Serious: Yes (Death)
  Sender: FDA-Public Use
  Company Number: PHHY2013PH082814

PATIENT
  Age: 30 Year
  Sex: Female

DRUGS (2)
  1. TASIGNA [Suspect]
     Indication: CHRONIC MYELOID LEUKAEMIA
     Dosage: UNK
     Dates: start: 2012
  2. PREDNISONE [Concomitant]
     Indication: LYMPHOMA

REACTIONS (7)
  - Lymphadenopathy [Fatal]
  - Back pain [Fatal]
  - Full blood count decreased [Fatal]
  - Pyrexia [Fatal]
  - Chronic myeloid leukaemia [Fatal]
  - Malignant neoplasm progression [Fatal]
  - Abdominal pain upper [Unknown]
